FAERS Safety Report 13272536 (Version 2)
Quarter: 2017Q1

REPORT INFORMATION
  Report Type: Spontaneous
  Country: FR (occurrence: FR)
  Receive Date: 20170227
  Receipt Date: 20170310
  Transmission Date: 20170428
  Serious: Yes (Other)
  Sender: FDA-Public Use
  Company Number: FR-HORIZON-BUP-0020-2017

PATIENT
  Age: 46 Year
  Sex: Male

DRUGS (3)
  1. STIMOL [Concomitant]
  2. AMMONAPS TABLET [Suspect]
     Active Substance: SODIUM PHENYLBUTYRATE
     Indication: UREA CYCLE ENZYME DEFICIENCY
     Route: 048
     Dates: start: 20170111, end: 20170118
  3. SODIUM BENZOATE [Suspect]
     Active Substance: SODIUM BENZOATE
     Indication: UREA CYCLE ENZYME DEFICIENCY
     Route: 042
     Dates: start: 20170112

REACTIONS (4)
  - Hypokalaemia [Recovered/Resolved]
  - Clonus [Recovered/Resolved]
  - Disturbance in attention [Recovered/Resolved]
  - Malnutrition [Recovered/Resolved]

NARRATIVE: CASE EVENT DATE: 20170112
